FAERS Safety Report 8465214-2 (Version None)
Quarter: 2012Q2

REPORT INFORMATION
  Report Type: 
  Country: None (occurrence: None)
  Receive Date: 20120626
  Receipt Date: 20120620
  Transmission Date: 20120825
  Serious: Yes (Other)
  Sender: FDA-Public Use
  Company Number: PHEH2012US004589

PATIENT
  Sex: Female
  Weight: 97.7 kg

DRUGS (6)
  1. COMBIPATCH [Suspect]
     Dosage: 1 DF, QW2
  2. FISH OIL [Concomitant]
     Dosage: UNK UKN, UNK
  3. CALCIUM W/MAGNESIUM [Concomitant]
     Dosage: UNK UKN, UNK
  4. MULTIVITAMIN PREPARATIONS WITH OR W/O MINERAL [Concomitant]
     Dosage: UNK UKN, UNK
  5. COMBIPATCH [Suspect]
     Dosage: 1 DF, QW2
     Route: 062
     Dates: start: 20110923, end: 20120306
  6. COMBIPATCH [Suspect]
     Dosage: 0.05/0.25 MG
     Route: 062

REACTIONS (5)
  - CERVICAL POLYP [None]
  - PRODUCT ADHESION ISSUE [None]
  - PAIN [None]
  - POSTMENOPAUSAL HAEMORRHAGE [None]
  - MENSTRUATION IRREGULAR [None]
